FAERS Safety Report 6919167-6 (Version None)
Quarter: 2010Q3

REPORT INFORMATION
  Report Type: 
  Country: None (occurrence: None)
  Receive Date: 20100811
  Receipt Date: 20100727
  Transmission Date: 20110219
  Serious: Yes (Death, Other)
  Sender: FDA-Public Use
  Company Number: FR-ROCHE-718218

PATIENT
  Sex: Female

DRUGS (9)
  1. AVASTIN [Suspect]
     Dosage: STRENGTH: 25 MG/ML, DAY 1 AND 15 PER CYCLE
     Route: 042
     Dates: start: 20091119, end: 20100211
  2. AVASTIN [Suspect]
     Route: 042
     Dates: start: 20100311, end: 20100311
  3. XELODA [Suspect]
     Route: 065
     Dates: start: 20100506, end: 20100607
  4. TAXOL [Suspect]
     Dosage: STRENGTH: 6 MG/ML, DAYS 1, 8, 15 PER CYCLE
     Route: 042
     Dates: start: 20091119, end: 20100211
  5. TAXOL [Suspect]
     Route: 042
     Dates: start: 20100311, end: 20100311
  6. ZOPHREN [Concomitant]
     Route: 042
  7. METHYLPREDNISOLONE [Concomitant]
     Route: 042
  8. POLARAMINE [Concomitant]
     Route: 042
  9. RANITIDINE HCL [Concomitant]
     Route: 042

REACTIONS (3)
  - ALTERED STATE OF CONSCIOUSNESS [None]
  - EPILEPSY [None]
  - PULMONARY CONGESTION [None]
